FAERS Safety Report 14147111 (Version 1)
Quarter: 2017Q4

REPORT INFORMATION
  Report Type: Spontaneous
  Country: US (occurrence: US)
  Receive Date: 20171031
  Receipt Date: 20171031
  Transmission Date: 20180321
  Serious: No
  Sender: FDA-Public Use
  Company Number: US-ROCHE-1999839

PATIENT
  Sex: Female

DRUGS (13)
  1. XALATAN [Concomitant]
     Active Substance: LATANOPROST
  2. NEXIUM [Concomitant]
     Active Substance: ESOMEPRAZOLE MAGNESIUM
  3. RESTORIL [Concomitant]
     Active Substance: TEMAZEPAM
  4. MUPIROCIN. [Concomitant]
     Active Substance: MUPIROCIN
  5. TRAZODONE [Concomitant]
     Active Substance: TRAZODONE HYDROCHLORIDE
  6. ESBRIET [Suspect]
     Active Substance: PIRFENIDONE
     Indication: PULMONARY ARTERIAL HYPERTENSION
     Route: 048
     Dates: start: 20170711
  7. LEVOTHYROXINE. [Concomitant]
     Active Substance: LEVOTHYROXINE
  8. WELLBUTRIN [Concomitant]
     Active Substance: BUPROPION HYDROCHLORIDE
  9. LYRICA [Concomitant]
     Active Substance: PREGABALIN
  10. MELATONIN [Concomitant]
     Active Substance: MELATONIN
  11. OMEPRAZOLE. [Concomitant]
     Active Substance: OMEPRAZOLE
  12. ALBUTEROL. [Concomitant]
     Active Substance: ALBUTEROL
  13. DUREZOL [Concomitant]
     Active Substance: DIFLUPREDNATE

REACTIONS (3)
  - Nephrolithiasis [Unknown]
  - Off label use [Unknown]
  - Intentional product use issue [Unknown]
